FAERS Safety Report 4673368-9 (Version None)
Quarter: 2005Q2

REPORT INFORMATION
  Report Type: 
  Country: None (occurrence: None)
  Receive Date: 20050523
  Receipt Date: 20050511
  Transmission Date: 20051028
  Serious: Yes (Disabling)
  Sender: FDA-Public Use
  Company Number: CH-2004-034052

PATIENT
  Sex: Female
  Weight: 78 kg

DRUGS (1)
  1. ULTRAVIST 370 [Suspect]
     Indication: SCAN BRAIN
     Dosage: 40 ML, INTRAVENOUS
     Route: 042
     Dates: start: 20040818, end: 20040818

REACTIONS (2)
  - COMPARTMENT SYNDROME [None]
  - POST PROCEDURAL COMPLICATION [None]
